FAERS Safety Report 10717440 (Version 1)
Quarter: 2015Q1

REPORT INFORMATION
  Report Type: Spontaneous
  Country: US (occurrence: US)
  Receive Date: 20150116
  Receipt Date: 20150116
  Transmission Date: 20150721
  Serious: No
  Sender: FDA-Public Use
  Company Number: US-HALOZYME THERAPEUTICS, INC.-2014-US-HYL-00115

PATIENT
  Sex: Female

DRUGS (1)
  1. HYLENEX RECOMBINANT [Suspect]
     Active Substance: HYALURONIDASE (HUMAN RECOMBINANT)
     Indication: POST PROCEDURAL COMPLICATION
     Dosage: 150 USP U/ML, SINGLE
     Route: 058
     Dates: start: 20140117, end: 20140117

REACTIONS (3)
  - Lid sulcus deepened [Not Recovered/Not Resolved]
  - Injection site reaction [Not Recovered/Not Resolved]
  - Dry eye [Not Recovered/Not Resolved]

NARRATIVE: CASE EVENT DATE: 20140117
